FAERS Safety Report 8282615-6 (Version None)
Quarter: 2012Q2

REPORT INFORMATION
  Report Type: 
  Country: None (occurrence: None)
  Receive Date: 20120413
  Receipt Date: 20120410
  Transmission Date: 20120825
  Serious: No
  Sender: FDA-Public Use
  Company Number: US-PFIZER INC-2012090210

PATIENT
  Sex: Male

DRUGS (2)
  1. LIPITOR [Suspect]
     Dosage: 40 MG, UNK
  2. LYRICA [Suspect]
     Dosage: 50 MG, UNK

REACTIONS (2)
  - FATIGUE [None]
  - COUGH [None]
